FAERS Safety Report 4840627-6 (Version None)
Quarter: 2005Q4

REPORT INFORMATION
  Report Type: 
  Country: None (occurrence: None)
  Receive Date: 20051130
  Receipt Date: 20051122
  Transmission Date: 20060501
  Serious: Yes (Disabling)
  Sender: FDA-Public Use
  Company Number: 2005CG01942

PATIENT
  Age: 3643 Day
  Sex: Male
  Weight: 27 kg

DRUGS (11)
  1. MOPRAL [Suspect]
     Route: 042
     Dates: start: 20050905, end: 20050925
  2. FLAGYL [Suspect]
     Route: 042
     Dates: start: 20050905, end: 20050908
  3. FLAGYL [Suspect]
     Route: 042
     Dates: start: 20050909, end: 20050912
  4. FLAGYL [Suspect]
     Route: 048
     Dates: start: 20050913, end: 20051003
  5. ATARAX [Suspect]
     Route: 042
     Dates: start: 20050909, end: 20051003
  6. TRIFLUCAN [Suspect]
     Route: 042
     Dates: start: 20050913, end: 20050916
  7. TRIFLUCAN [Suspect]
     Route: 042
     Dates: start: 20050922, end: 20051003
  8. TERCIAN [Suspect]
     Route: 048
     Dates: start: 20050914, end: 20051003
  9. PERFALGAN [Concomitant]
     Dates: start: 20050905, end: 20050901
  10. EFFERALGAN [Concomitant]
     Dates: start: 20050901, end: 20050925
  11. CODENFAN [Concomitant]
     Dates: start: 20050901, end: 20050925

REACTIONS (3)
  - MUSCLE HAEMORRHAGE [None]
  - NEUROPATHY PERIPHERAL [None]
  - PARALYSIS [None]
